FAERS Safety Report 8990889 (Version 1)
Quarter: 2012Q4

REPORT INFORMATION
  Report Type: Spontaneous
  Country: US (occurrence: None)
  Receive Date: 20121226
  Receipt Date: 20121226
  Transmission Date: 20130627
  Serious: No
  Sender: FDA-Public Use
  Company Number: None

PATIENT
  Sex: Female
  Weight: 127.01 kg

DRUGS (2)
  1. LEVAQUIN 500MG UNKNOWN [Suspect]
     Indication: ACUTE SINUSITIS
     Dosage: levofloxacin (Levaquin) 500 mg 1 tab daily po
     Route: 048
     Dates: start: 20121012
  2. LEVAQUIN 500MG UNKNOWN [Suspect]
     Indication: ACUTE BRONCHITIS
     Dosage: levofloxacin (Levaquin) 500 mg 1 tab daily po
     Route: 048
     Dates: start: 20121012

REACTIONS (2)
  - Weight bearing difficulty [None]
  - Joint crepitation [None]
